FAERS Safety Report 10141832 (Version 1)
Quarter: 2014Q2

REPORT INFORMATION
  Report Type: Spontaneous
  Country: US (occurrence: US)
  Receive Date: 20140429
  Receipt Date: 20140429
  Transmission Date: 20141212
  Serious: Yes (Hospitalization, Other)
  Sender: FDA-Public Use
  Company Number: US-PFIZER INC-2014116081

PATIENT
  Age: 60 Year
  Sex: Female
  Weight: 57.6 kg

DRUGS (2)
  1. LIPITOR [Suspect]
     Indication: BLOOD CHOLESTEROL INCREASED
     Dosage: 80 MG, 1X/DAY
     Route: 048
     Dates: start: 201111, end: 201203
  2. HYDROCHLOROTHIAZIDE/TRIAMTERENE [Concomitant]
     Indication: HYPERTENSION
     Dosage: UNK

REACTIONS (10)
  - Cerebrovascular accident [Unknown]
  - Hypoaesthesia [Not Recovered/Not Resolved]
  - Paraesthesia [Not Recovered/Not Resolved]
  - Sensory disturbance [Not Recovered/Not Resolved]
  - Muscular weakness [Not Recovered/Not Resolved]
  - Paraesthesia [Not Recovered/Not Resolved]
  - Myalgia [Unknown]
  - Paraesthesia [Not Recovered/Not Resolved]
  - Paraesthesia [Not Recovered/Not Resolved]
  - Drug intolerance [Unknown]
